FAERS Safety Report 13755617 (Version 1)
Quarter: 2017Q3

REPORT INFORMATION
  Report Type: Spontaneous
  Country: US (occurrence: US)
  Receive Date: 20170714
  Receipt Date: 20170714
  Transmission Date: 20171127
  Serious: Yes (Hospitalization)
  Sender: FDA-Public Use
  Company Number: None

PATIENT
  Age: 78 Year
  Sex: Male
  Weight: 65 kg

DRUGS (4)
  1. RISPERIDONE. [Suspect]
     Active Substance: RISPERIDONE
     Indication: DEMENTIA
     Route: 048
     Dates: start: 20170630, end: 20170630
  2. RISPERIDONE. [Suspect]
     Active Substance: RISPERIDONE
     Indication: AGITATION
     Route: 048
     Dates: start: 20170630, end: 20170630
  3. LORAZEPAM. [Suspect]
     Active Substance: LORAZEPAM
  4. DIVALPROEX [Suspect]
     Active Substance: DIVALPROEX SODIUM

REACTIONS (2)
  - Sensory disturbance [None]
  - Tremor [None]

NARRATIVE: CASE EVENT DATE: 20170630
